FAERS Safety Report 4738154-X (Version None)
Quarter: 2005Q3

REPORT INFORMATION
  Report Type: 
  Country: None (occurrence: None)
  Receive Date: 20050809
  Receipt Date: 20050331
  Transmission Date: 20060218
  Serious: Yes (Hospitalization, Disabling)
  Sender: FDA-Public Use
  Company Number: US-ROCHE-400500

PATIENT
  Age: 38 Year
  Sex: Female
  Weight: 63.5 kg

DRUGS (2)
  1. ACCUTANE [Suspect]
     Route: 048
     Dates: start: 19980216, end: 19980615
  2. DEMULEN 1/35-21 [Concomitant]
     Route: 048

REACTIONS (16)
  - ACROCHORDON [None]
  - ALOPECIA [None]
  - ARTHRALGIA [None]
  - BEHCET'S SYNDROME [None]
  - COLITIS [None]
  - COLON ADENOMA [None]
  - CROHN'S DISEASE [None]
  - ERYTHEMA NODOSUM [None]
  - GASTROINTESTINAL DISORDER [None]
  - HAEMORRHOIDS [None]
  - INFLAMMATORY BOWEL DISEASE [None]
  - INTESTINAL HAEMORRHAGE [None]
  - MULTI-ORGAN DISORDER [None]
  - RECTAL HAEMORRHAGE [None]
  - RECTAL POLYP [None]
  - WEIGHT DECREASED [None]
